FAERS Safety Report 8303356-2 (Version None)
Quarter: 2012Q2

REPORT INFORMATION
  Report Type: 
  Country: None (occurrence: None)
  Receive Date: 20120423
  Receipt Date: 20120417
  Transmission Date: 20120825
  Serious: Yes (Death, Hospitalization)
  Sender: FDA-Public Use
  Company Number: US-AMGEN-USASP2011061656

PATIENT
  Age: 64 Year
  Sex: Male
  Weight: 64.399 kg

DRUGS (2)
  1. NPLATE [Suspect]
     Indication: MYELODYSPLASTIC SYNDROME
  2. NPLATE [Suspect]
     Indication: IDIOPATHIC THROMBOCYTOPENIC PURPURA
     Dosage: 650 MG, QWK
     Route: 058
     Dates: start: 20101111, end: 20110512

REACTIONS (2)
  - HOSPITALISATION [None]
  - MYELODYSPLASTIC SYNDROME [None]
